FAERS Safety Report 6533307-2 (Version None)
Quarter: 2010Q1

REPORT INFORMATION
  Report Type: 
  Country: None (occurrence: None)
  Receive Date: 20100111
  Receipt Date: 20100106
  Transmission Date: 20100710
  Serious: Yes (Hospitalization)
  Sender: FDA-Public Use
  Company Number: FR-MERCK-1001FRA00009

PATIENT
  Age: 64 Year
  Sex: Female

DRUGS (8)
  1. PRIMAXIN [Suspect]
     Indication: PERITONITIS
     Route: 042
     Dates: start: 20090915
  2. PRIMAXIN [Suspect]
     Route: 042
     Dates: start: 20091003, end: 20091009
  3. PRIMAXIN [Suspect]
     Indication: GASTROENTERITIS ESCHERICHIA COLI
     Route: 042
     Dates: start: 20090915
  4. PRIMAXIN [Suspect]
     Route: 042
     Dates: start: 20091003, end: 20091009
  5. FLUCONAZOLE [Suspect]
     Indication: ABDOMINAL ABSCESS
     Route: 042
     Dates: start: 20091003
  6. VANCOMYCIN [Concomitant]
     Route: 065
     Dates: start: 20090915
  7. AMOXICILLIN AND CLAVULANATE POTASSIUM [Concomitant]
     Route: 065
     Dates: start: 20090901
  8. CEFOTAXIME SODIUM [Concomitant]
     Route: 065
     Dates: start: 20090901

REACTIONS (3)
  - BLOOD ALKALINE PHOSPHATASE INCREASED [None]
  - CHOLESTASIS [None]
  - GAMMA-GLUTAMYLTRANSFERASE INCREASED [None]
